FAERS Safety Report 21342215 (Version 2)
Quarter: 2022Q3

REPORT INFORMATION
  Report Type: Spontaneous
  Country: JP (occurrence: JP)
  Receive Date: 20220916
  Receipt Date: 20220923
  Transmission Date: 20221027
  Serious: Yes (Hospitalization)
  Sender: FDA-Public Use
  Company Number: JP-ADVANZ PHARMA-202209005786

PATIENT

DRUGS (13)
  1. ZONISAMIDE [Suspect]
     Active Substance: ZONISAMIDE
     Indication: Product used for unknown indication
     Dosage: 50 MG, QD (TRERIEF)
     Route: 048
     Dates: start: 20220527
  2. ZONISAMIDE [Suspect]
     Active Substance: ZONISAMIDE
     Dosage: (ZONISAMIDE RESUMED)
  3. CLONAZEPAM [Suspect]
     Active Substance: CLONAZEPAM
     Indication: Parasomnia
     Dosage: 0.5 MG (1T 1X)
     Route: 048
  4. CLONAZEPAM [Suspect]
     Active Substance: CLONAZEPAM
     Indication: Rapid eye movement sleep behaviour disorder
  5. BROTIZOLAM [Suspect]
     Active Substance: BROTIZOLAM
     Indication: Product used for unknown indication
     Dosage: 0.25 MG, QD
     Route: 048
  6. LEVODOPA [Suspect]
     Active Substance: LEVODOPA
     Indication: Product used for unknown indication
     Dosage: 250 MG, QD
     Route: 048
  7. LEVODOPA [Suspect]
     Active Substance: LEVODOPA
     Dosage: 300 MG, QD
     Route: 048
  8. LEVODOPA [Suspect]
     Active Substance: LEVODOPA
     Dosage: 4.5 MG, QD
     Route: 048
  9. ZOLPIDEM TARTRATE [Suspect]
     Active Substance: ZOLPIDEM TARTRATE
     Indication: Product used for unknown indication
     Dosage: UNK
     Route: 048
  10. ESZOPICLONE [Suspect]
     Active Substance: ESZOPICLONE
     Indication: Rapid eye movement sleep behaviour disorder
     Dosage: 1 MG, QD
     Route: 048
  11. ASPIRIN [Concomitant]
     Active Substance: ASPIRIN
     Dosage: (1 T 1X)
  12. ROSUVASTATIN CALCIUM [Concomitant]
     Active Substance: ROSUVASTATIN CALCIUM
     Dosage: (1T 1X)
  13. MAGNESIUM OXIDE [Concomitant]
     Active Substance: MAGNESIUM OXIDE
     Dosage: (3T 3X)

REACTIONS (4)
  - Orthostatic hypotension [Unknown]
  - Restlessness [Unknown]
  - Condition aggravated [Unknown]
  - Off label use [Unknown]
